FAERS Safety Report 9458337 (Version 2)
Quarter: 2013Q3

REPORT INFORMATION
  Report Type: Spontaneous
  Country: US (occurrence: US)
  Receive Date: 20130814
  Receipt Date: 20130821
  Transmission Date: 20140515
  Serious: Yes (Other)
  Sender: FDA-Public Use
  Company Number: US-PFIZER INC-2013233130

PATIENT
  Age: 60 Year
  Sex: Male
  Weight: 195 kg

DRUGS (2)
  1. CELEBREX [Suspect]
     Indication: OSTEOARTHRITIS
     Dosage: 200 MG, UNK
  2. METOPROLOL [Concomitant]
     Indication: BLOOD PRESSURE ABNORMAL
     Dosage: 25 MG, 1X/DAY

REACTIONS (7)
  - Loss of consciousness [Unknown]
  - Fall [Unknown]
  - Hip fracture [Unknown]
  - Joint dislocation [Unknown]
  - Dysstasia [Unknown]
  - Pain [Unknown]
  - Gait disturbance [Unknown]
